FAERS Safety Report 8599519 (Version 2)
Quarter: 2012Q4

REPORT INFORMATION
  Report Type: 
  Country: US (occurrence: US)
  Receive Date: 20120605
  Receipt Date: 20120905
  Transmission Date: 20130627
  Serious: No
  Sender: FDA-Public Use
  Company Number: US-ASTRAZENECA-2012SE29026

PATIENT
  Age: 57 Year
  Sex: Female

DRUGS (1)
  1. SYMBICORT PMDI [Suspect]
     Indication: CHRONIC OBSTRUCTIVE PULMONARY DISEASE
     Route: 055

REACTIONS (8)
  - Limb discomfort [Unknown]
  - Dyspnoea [Unknown]
  - Multiple allergies [Unknown]
  - Asthma [Unknown]
  - Dysphonia [Unknown]
  - Cough [Unknown]
  - Intentional drug misuse [Unknown]
  - Drug dose omission [Unknown]
